FAERS Safety Report 21299154 (Version 1)
Quarter: 2022Q3

REPORT INFORMATION
  Report Type: Report from Study
  Country: DE (occurrence: DE)
  Receive Date: 20220906
  Receipt Date: 20220906
  Transmission Date: 20221027
  Serious: Yes (Hospitalization)
  Sender: FDA-Public Use
  Company Number: DE-NOVARTISPH-NVSC2022DE133349

PATIENT
  Sex: Male

DRUGS (9)
  1. UNSPECIFIED INGREDIENT [Suspect]
     Active Substance: UNSPECIFIED INGREDIENT
     Indication: Product used for unknown indication
     Dosage: UNK
     Route: 065
  2. IBUPROFEN [Suspect]
     Active Substance: IBUPROFEN
     Indication: Axial spondyloarthritis
     Dosage: 600 MG
     Route: 065
     Dates: start: 20180401, end: 20180404
  3. IBUPROFEN [Suspect]
     Active Substance: IBUPROFEN
     Dosage: 1200 MG
     Route: 065
     Dates: start: 20181001, end: 20181015
  4. IBUPROFEN [Suspect]
     Active Substance: IBUPROFEN
     Dosage: 1200 MG
     Route: 065
     Dates: start: 20220130
  5. ETORICOXIB [Suspect]
     Active Substance: ETORICOXIB
     Indication: Axial spondyloarthritis
     Dosage: 120 MG
     Route: 065
     Dates: start: 20170505
  6. ETORICOXIB [Suspect]
     Active Substance: ETORICOXIB
     Dosage: 30 MG
     Route: 065
     Dates: start: 20170505, end: 20171001
  7. ETORICOXIB [Suspect]
     Active Substance: ETORICOXIB
     Dosage: 60 MG
     Route: 065
     Dates: start: 20190114
  8. ETORICOXIB [Suspect]
     Active Substance: ETORICOXIB
     Dosage: 90 MG
     Route: 065
     Dates: start: 20190114
  9. ETORICOXIB [Suspect]
     Active Substance: ETORICOXIB
     Dosage: 120 MG
     Route: 065
     Dates: start: 20201210

REACTIONS (3)
  - Laryngopharyngitis [Unknown]
  - Rotator cuff syndrome [Unknown]
  - Alopecia areata [Unknown]

NARRATIVE: CASE EVENT DATE: 20191015
